FAERS Safety Report 17609233 (Version 2)
Quarter: 2020Q3

REPORT INFORMATION
  Report Type: Spontaneous
  Country: US (occurrence: US)
  Receive Date: 20200401
  Receipt Date: 20200812
  Transmission Date: 20201102
  Serious: Yes (Other)
  Sender: FDA-Public Use
  Company Number: US-009507513-2003USA008733

PATIENT
  Weight: 96.6 kg

DRUGS (4)
  1. COZAAR [Suspect]
     Active Substance: LOSARTAN POTASSIUM
     Dosage: ONE HALF TABLET, ONCE DAILY
     Route: 048
  2. SILODOSIN. [Suspect]
     Active Substance: SILODOSIN
     Dosage: UNK
     Route: 048
  3. CELECOXIB. [Suspect]
     Active Substance: CELECOXIB
     Dosage: TAKE 1 CAPSULE TWICE DAILY
     Route: 048
  4. OMEPRAZOLE. [Suspect]
     Active Substance: OMEPRAZOLE
     Dosage: 1 CAPSULE DAILY
     Route: 048

REACTIONS (10)
  - Chest discomfort [Unknown]
  - Arthralgia [Unknown]
  - Colon cancer [Unknown]
  - Dyspnoea exertional [Unknown]
  - Back pain [Unknown]
  - Dyspepsia [Unknown]
  - Pollakiuria [Unknown]
  - Nocturia [Unknown]
  - Myelodysplastic syndrome [Unknown]
  - Aortic dilatation [Unknown]
